FAERS Safety Report 21422749 (Version 2)
Quarter: 2022Q4

REPORT INFORMATION
  Report Type: Spontaneous
  Country: AR (occurrence: AR)
  Receive Date: 20221007
  Receipt Date: 20221108
  Transmission Date: 20230113
  Serious: Yes (Hospitalization, Other)
  Sender: FDA-Public Use
  Company Number: AR-PFIZER INC-PV202200077035

PATIENT
  Age: 68 Year
  Sex: Female

DRUGS (1)
  1. IBRANCE [Suspect]
     Active Substance: PALBOCICLIB
     Dosage: UNK

REACTIONS (10)
  - Cerebrovascular accident [Recovered/Resolved]
  - Facial paralysis [Unknown]
  - Viral infection [Unknown]
  - Dehydration [Recovered/Resolved]
  - Pain [Recovered/Resolved]
  - Decreased appetite [Recovered/Resolved]
  - Aphthous ulcer [Recovered/Resolved]
  - Weight decreased [Recovered/Resolved]
  - Pleural effusion [Unknown]
  - Neoplasm progression [Unknown]
